FAERS Safety Report 10136839 (Version 1)
Quarter: 2014Q2

REPORT INFORMATION
  Report Type: Spontaneous
  Country: US (occurrence: None)
  Receive Date: 20140425
  Receipt Date: 20140425
  Transmission Date: 20141212
  Serious: Yes (Hospitalization)
  Sender: FDA-Public Use
  Company Number: UTC-047373

PATIENT
  Age: 34 Year
  Sex: Female

DRUGS (1)
  1. REMODULIN (10 MILLIGRAM/MILLILITERS, INJECTION FOR INFUSION) (TREPROSTINIL SODIUM) [Suspect]
     Indication: PULMONARY ARTERIAL HYPERTENSION
     Dosage: 146.88 UG/KG (0.102 UG/KG, 1 IN 1MIN) SUBCUTANEOUS
     Route: 058
     Dates: start: 20100108

REACTIONS (1)
  - Upper respiratory tract infection [None]
